FAERS Safety Report 5706694-2 (Version None)
Quarter: 2008Q2

REPORT INFORMATION
  Report Type: 
  Country: None (occurrence: None)
  Receive Date: 20080416
  Receipt Date: 20080404
  Transmission Date: 20081010
  Serious: No
  Sender: FDA-Public Use
  Company Number: JP-JNJFOC-20080300442

PATIENT
  Sex: Female

DRUGS (4)
  1. CRAVIT [Suspect]
     Indication: DRUG USE FOR UNKNOWN INDICATION
     Route: 048
     Dates: start: 20080220, end: 20080220
  2. RIZE [Suspect]
     Indication: DRUG USE FOR UNKNOWN INDICATION
     Route: 048
  3. RYTHMODAN [Concomitant]
     Route: 048
  4. DEPAS [Concomitant]
     Route: 048

REACTIONS (1)
  - HALLUCINATION [None]
